FAERS Safety Report 19830640 (Version 1)
Quarter: 2021Q3

REPORT INFORMATION
  Report Type: Spontaneous
  Country: JP (occurrence: JP)
  Receive Date: 20210915
  Receipt Date: 20210915
  Transmission Date: 20211014
  Serious: Yes (Other)
  Sender: FDA-Public Use
  Company Number: JP-PRA-000147

PATIENT
  Age: 73 Year

DRUGS (4)
  1. PREDNISOLONE. [Suspect]
     Active Substance: PREDNISOLONE
     Indication: B-CELL LYMPHOMA
     Dosage: TAPER OF EVERY 5 MG FOR 7 DAYS
     Route: 065
  2. METHYLPREDNISOLONE. [Suspect]
     Active Substance: METHYLPREDNISOLONE
     Indication: B-CELL LYMPHOMA
     Dosage: TWO COURSES OF HIGH?DOSE?MPSL (1,000 MG/DAY FOR 3 DAYS)
     Route: 065
  3. METHYLPREDNISOLONE. [Suspect]
     Active Substance: METHYLPREDNISOLONE
     Indication: CREUTZFELDT-JAKOB DISEASE
     Route: 065
  4. PREDNISOLONE. [Suspect]
     Active Substance: PREDNISOLONE
     Indication: B-CELL LYMPHOMA
     Dosage: FOR 7 DAYS
     Route: 065

REACTIONS (3)
  - Product use in unapproved indication [Unknown]
  - Hashimoto^s encephalopathy [Unknown]
  - Disease recurrence [Unknown]
